FAERS Safety Report 8446428-4 (Version None)
Quarter: 2012Q2

REPORT INFORMATION
  Report Type: 
  Country: None (occurrence: None)
  Receive Date: 20120618
  Receipt Date: 20120320
  Transmission Date: 20120825
  Serious: No
  Sender: FDA-Public Use
  Company Number: US-TEVA-328999USA

PATIENT
  Sex: Male
  Weight: 70.37 kg

DRUGS (5)
  1. LISINOPRIL [Concomitant]
     Indication: BLOOD CHOLESTEROL
     Route: 048
     Dates: start: 20110101
  2. HYDROMORPHONE HYDROCHLORIDE [Concomitant]
     Indication: NECK PAIN
     Route: 048
  3. ACTIQ [Suspect]
     Indication: NECK PAIN
     Route: 002
     Dates: end: 20120318
  4. FENTANYL CITRATE [Concomitant]
     Indication: NECK PAIN
     Dosage: 25 MICROGRAM;
  5. OLMESARTAN MEDOXOMIL [Concomitant]
     Indication: BLOOD PRESSURE
     Dosage: 80 MILLIGRAM;
     Route: 048
     Dates: start: 20110101

REACTIONS (1)
  - PAIN [None]
